FAERS Safety Report 15488163 (Version 1)
Quarter: 2018Q4

REPORT INFORMATION
  Report Type: Spontaneous
  Country: DE (occurrence: DE)
  Receive Date: 20181011
  Receipt Date: 20181011
  Transmission Date: 20190205
  Serious: Yes (Other)
  Sender: FDA-Public Use
  Company Number: DE-ALIMERA SCIENCES LIMITED-DE-IL-2018-004151

PATIENT

DRUGS (2)
  1. ILUVIEN [Suspect]
     Active Substance: FLUOCINOLONE ACETONIDE
     Indication: MACULAR OEDEMA
     Dosage: 0.25 ?G, QD - RIGHT EYE
     Route: 031
  2. ILUVIEN [Suspect]
     Active Substance: FLUOCINOLONE ACETONIDE
     Indication: DIABETIC RETINOPATHY

REACTIONS (2)
  - Glaucoma drainage device placement [Recovered/Resolved]
  - Intraocular pressure increased [Recovered/Resolved]
